FAERS Safety Report 14903432 (Version 4)
Quarter: 2019Q1

REPORT INFORMATION
  Report Type: Spontaneous
  Country: US (occurrence: US)
  Receive Date: 20180516
  Receipt Date: 20190314
  Transmission Date: 20190417
  Serious: No
  Sender: FDA-Public Use
  Company Number: US-009507513-1805USA006045

PATIENT
  Sex: Female

DRUGS (2)
  1. ASMANEX [Suspect]
     Active Substance: MOMETASONE FUROATE
     Dosage: 220 MCG / 1 PUFF NIGHTLY
     Route: 055
  2. ASMANEX [Suspect]
     Active Substance: MOMETASONE FUROATE
     Dosage: UNK
     Route: 055

REACTIONS (4)
  - No adverse event [Unknown]
  - Product quality issue [Unknown]
  - Circumstance or information capable of leading to medication error [Unknown]
  - Incorrect dosage administered [Unknown]
